FAERS Safety Report 7266666-6 (Version None)
Quarter: 2011Q1

REPORT INFORMATION
  Report Type: 
  Country: None (occurrence: None)
  Receive Date: 20110201
  Receipt Date: 20110125
  Transmission Date: 20110831
  Serious: Yes (Disabling, Other)
  Sender: FDA-Public Use
  Company Number: GB-BIOGENIDEC-2010BI023818

PATIENT
  Age: 52 Year
  Sex: Female

DRUGS (7)
  1. PROPRANOLOL [Concomitant]
  2. HRT (NOS) [Concomitant]
  3. PREMARIN [Concomitant]
  4. CITALOPRAM HYDROBROMIDE [Concomitant]
  5. TYSABRI [Suspect]
     Indication: MULTIPLE SCLEROSIS
     Route: 042
     Dates: start: 20090317, end: 20100412
  6. SUMATRIPTAN SUCCINATE [Concomitant]
  7. TYSABRI [Suspect]
     Route: 042
     Dates: start: 20100707

REACTIONS (1)
  - MYOCLONUS [None]
